FAERS Safety Report 23841964 (Version 1)
Quarter: 2024Q2

REPORT INFORMATION
  Report Type: Spontaneous
  Country: EG (occurrence: EG)
  Receive Date: 20240510
  Receipt Date: 20240510
  Transmission Date: 20240716
  Serious: Yes (Life-Threatening, Hospitalization)
  Sender: FDA-Public Use
  Company Number: EG-MYLANLABS-2024M1040514

PATIENT
  Age: 7 Day
  Sex: Female
  Weight: 3.08 kg

DRUGS (3)
  1. VANCOMYCIN [Suspect]
     Active Substance: VANCOMYCIN
     Indication: Respiratory distress
     Dosage: 500 MG(10 MG / KG /12 HOURS IV )
     Route: 042
     Dates: start: 20240128
  2. VANCOMYCIN [Suspect]
     Active Substance: VANCOMYCIN
     Indication: Sepsis
  3. MEROPENEM [Suspect]
     Active Substance: MEROPENEM
     Indication: Sepsis
     Dosage: 500 MG (20 MG /KG/8 HOURS IV )
     Route: 042
     Dates: start: 20240128

REACTIONS (1)
  - C-reactive protein increased [Recovered/Resolved]

NARRATIVE: CASE EVENT DATE: 20240203
